FAERS Safety Report 8553687-6 (Version None)
Quarter: 2012Q3

REPORT INFORMATION
  Report Type: 
  Country: None (occurrence: None)
  Receive Date: 20120731
  Receipt Date: 20120712
  Transmission Date: 20120928
  Serious: Yes (Hospitalization, Other)
  Sender: FDA-Public Use
  Company Number: US-009507513-2011SP056192

PATIENT

DRUGS (1)
  1. NUVARING [Suspect]
     Indication: CONTRACEPTION
     Dosage: UNK
     Dates: start: 20090301, end: 20091225

REACTIONS (3)
  - TRANSIENT ISCHAEMIC ATTACK [None]
  - PRE-ECLAMPSIA [None]
  - CEREBROVASCULAR ACCIDENT [None]
